FAERS Safety Report 5292398-X (Version None)
Quarter: 2007Q2

REPORT INFORMATION
  Report Type: 
  Country: None (occurrence: None)
  Receive Date: 20070410
  Receipt Date: 20070329
  Transmission Date: 20071010
  Serious: Yes (Other)
  Sender: FDA-Public Use
  Company Number: US-PFIZER INC-2007026391

PATIENT
  Sex: Male

DRUGS (2)
  1. EXUBERA [Suspect]
     Indication: DIABETES MELLITUS NON-INSULIN-DEPENDENT
  2. AVANDIA [Interacting]
     Indication: DIABETES MELLITUS NON-INSULIN-DEPENDENT
     Dates: start: 20060101

REACTIONS (4)
  - DRUG INTERACTION [None]
  - FLUID RETENTION [None]
  - PERICARDIAL EFFUSION [None]
  - PERIORBITAL OEDEMA [None]
